FAERS Safety Report 15919054 (Version 3)
Quarter: 2019Q1

REPORT INFORMATION
  Report Type: Spontaneous
  Country: JP (occurrence: JP)
  Receive Date: 20190205
  Receipt Date: 20190307
  Transmission Date: 20190417
  Serious: Yes (Life-Threatening, Hospitalization, Disabling, Other)
  Sender: FDA-Public Use
  Company Number: JP-ROCHE-2260228

PATIENT
  Age: 55 Year
  Sex: Female

DRUGS (1)
  1. XOFLUZA [Suspect]
     Active Substance: BALOXAVIR MARBOXIL
     Indication: INFLUENZA
     Route: 048
     Dates: start: 20190121, end: 20190121

REACTIONS (9)
  - Hypovolaemic shock [Unknown]
  - Cardio-respiratory arrest [Unknown]
  - Enterocolitis [Unknown]
  - Hypoxic-ischaemic encephalopathy [Unknown]
  - Renal impairment [Unknown]
  - Multiple organ dysfunction syndrome [Unknown]
  - Rhabdomyolysis [Unknown]
  - Diarrhoea [Unknown]
  - Compartment syndrome [Unknown]

NARRATIVE: CASE EVENT DATE: 20190123
